FAERS Safety Report 8818776 (Version 2)
Quarter: 2012Q4

REPORT INFORMATION
  Report Type: 
  Country: US (occurrence: US)
  Receive Date: 20121001
  Receipt Date: 20121010
  Transmission Date: 20130627
  Serious: Yes (Disabling, Other)
  Sender: FDA-Public Use
  Company Number: CHPA2012US020382

PATIENT
  Age: 61 Year
  Sex: Male

DRUGS (1)
  1. THERAPEUTIC MINERAL ICE [Suspect]
     Indication: BACK PAIN
     Dosage: UNK, 2-3 times daily
     Route: 061

REACTIONS (4)
  - Disability [Not Recovered/Not Resolved]
  - Intervertebral disc degeneration [Unknown]
  - Fall [Recovered/Resolved]
  - Incorrect drug administration duration [Unknown]
